FAERS Safety Report 8609895-9 (Version None)
Quarter: 2012Q3

REPORT INFORMATION
  Report Type: 
  Country: None (occurrence: None)
  Receive Date: 20120821
  Receipt Date: 20120817
  Transmission Date: 20120928
  Serious: No
  Sender: FDA-Public Use
  Company Number: US-PFIZER INC-2012202403

PATIENT
  Age: 45 Year
  Sex: Female
  Weight: 73.016 kg

DRUGS (1)
  1. LIPITOR [Suspect]
     Indication: BLOOD CHOLESTEROL INCREASED
     Dosage: 20 MG, 1X/DAY
     Route: 048

REACTIONS (2)
  - GLYCOSYLATED HAEMOGLOBIN INCREASED [None]
  - BLOOD CHOLESTEROL INCREASED [None]
